FAERS Safety Report 18122513 (Version 1)
Quarter: 2020Q3

REPORT INFORMATION
  Report Type: Spontaneous
  Country: IT (occurrence: IT)
  Receive Date: 20200807
  Receipt Date: 20200807
  Transmission Date: 20201103
  Serious: Yes (Hospitalization, Other)
  Sender: FDA-Public Use
  Company Number: IT-MICRO LABS LIMITED-ML2020-02298

PATIENT
  Age: 44 Year
  Sex: Male

DRUGS (12)
  1. ENOXAPARIN [Concomitant]
     Active Substance: ENOXAPARIN
     Indication: PROPHYLAXIS
     Dosage: 4000 UI
     Route: 058
  2. LOPINAVIR/RITONAVIR [Concomitant]
     Active Substance: LOPINAVIR\RITONAVIR
     Indication: COVID-19
     Dosage: 400/100 MG
  3. AMOXICILLIN/CLAVULANIC ACID [Suspect]
     Active Substance: AMOXICILLIN\CLAVULANIC ACID
     Indication: CHEST PAIN
  4. PIPERACILLIN AND TAZOBACTAM [Suspect]
     Active Substance: PIPERACILLIN SODIUM\TAZOBACTAM SODIUM
     Indication: PYREXIA
  5. LACTULOSE. [Suspect]
     Active Substance: LACTULOSE
     Dosage: AVERAGE DAILY DOSE OF 25 ML FOR NEXT 6 DAYS
  6. PARACETAMOL [Concomitant]
     Active Substance: ACETAMINOPHEN
     Indication: PYREXIA
  7. TEICOPLANIN [Suspect]
     Active Substance: TEICOPLANIN
     Indication: PRODUCTIVE COUGH
     Dosage: 400 MG ONE TIME A DAY (AFTER LOADING DOSE)
     Route: 042
  8. ACETYLCYSTEINE. [Concomitant]
     Active Substance: ACETYLCYSTEINE
     Route: 042
  9. PIPERACILLIN AND TAZOBACTAM [Suspect]
     Active Substance: PIPERACILLIN SODIUM\TAZOBACTAM SODIUM
     Indication: PRODUCTIVE COUGH
     Dosage: 4.5 G THREE TIMES A DAY
  10. TEICOPLANIN [Suspect]
     Active Substance: TEICOPLANIN
     Indication: PYREXIA
  11. AMOXICILLIN/CLAVULANIC ACID [Suspect]
     Active Substance: AMOXICILLIN\CLAVULANIC ACID
     Indication: PRODUCTIVE COUGH
  12. HYDROXYCHLOROQUINE [Concomitant]
     Active Substance: HYDROXYCHLOROQUINE
     Indication: COVID-19
     Dosage: 200 MG

REACTIONS (1)
  - Pneumatosis intestinalis [Recovered/Resolved]
